FAERS Safety Report 15154100 (Version 1)
Quarter: 2018Q3

REPORT INFORMATION
  Report Type: Report from Study
  Country: BR (occurrence: BR)
  Receive Date: 20180717
  Receipt Date: 20180717
  Transmission Date: 20181010
  Serious: Yes (Other)
  Sender: FDA-Public Use
  Company Number: BR-JNJFOC-20170106227

PATIENT
  Sex: Female
  Weight: 64 kg

DRUGS (21)
  1. PREDNISONE. [Concomitant]
     Active Substance: PREDNISONE
     Route: 065
  2. NIMESULIDE [Concomitant]
     Active Substance: NIMESULIDE
     Route: 065
  3. ARTROLIVE [Concomitant]
     Active Substance: CHONDROITIN SULFATE (BOVINE)\GLUCOSAMINE SULFATE
     Route: 065
  4. SUPRA D [Concomitant]
     Route: 065
  5. CORTISONE [Suspect]
     Active Substance: CORTISONE\HYDROCORTISONE
     Indication: PRODUCT USED FOR UNKNOWN INDICATION
     Route: 065
  6. ALPRAZOLAM. [Concomitant]
     Active Substance: ALPRAZOLAM
     Route: 065
  7. VITAMIN D [Concomitant]
     Active Substance: CHOLECALCIFEROL
     Route: 065
  8. TIBOLONA [Concomitant]
     Route: 065
  9. CALCIUM [Concomitant]
     Active Substance: CALCIUM
     Route: 065
  10. OMEPRAZOLE. [Concomitant]
     Active Substance: OMEPRAZOLE
     Route: 065
  11. DEFLAZACORT [Interacting]
     Active Substance: DEFLAZACORT
     Indication: PRODUCT USED FOR UNKNOWN INDICATION
     Route: 065
  12. PACO [Concomitant]
     Active Substance: ACETAMINOPHEN\CODEINE PHOSPHATE
     Route: 065
  13. LACRIFILM [Concomitant]
     Active Substance: CARBOXYMETHYLCELLULOSE SODIUM
     Route: 065
  14. ISONIAZID. [Concomitant]
     Active Substance: ISONIAZID
     Route: 065
  15. SIMPONI [Suspect]
     Active Substance: GOLIMUMAB
     Indication: RHEUMATOID ARTHRITIS
     Route: 058
     Dates: start: 20161216, end: 20180428
  16. IBANDRONATE [Concomitant]
     Active Substance: IBANDRONATE SODIUM
     Route: 065
  17. DIPIRONE [Concomitant]
     Active Substance: METAMIZOLE SODIUM
     Route: 065
  18. PANTOGAR [Concomitant]
     Active Substance: AMINOBENZOIC ACID\CALCIUM PANTOTHENATE\CYSTINE\KERATIN\THIAMINE MONONITRATE
     Route: 065
  19. SIMPONI [Suspect]
     Active Substance: GOLIMUMAB
     Indication: RHEUMATOID ARTHRITIS
     Route: 058
     Dates: start: 20161216, end: 20170429
  20. TIBOLONE [Concomitant]
     Active Substance: TIBOLONE
     Route: 065
  21. CALCIUM CARBONATE. [Concomitant]
     Active Substance: CALCIUM CARBONATE
     Route: 065

REACTIONS (29)
  - Localised infection [Unknown]
  - Gastric disorder [Unknown]
  - Influenza [Not Recovered/Not Resolved]
  - Weight increased [Unknown]
  - Arthritis infective [Unknown]
  - Pyrexia [Unknown]
  - Lung disorder [Not Recovered/Not Resolved]
  - Dermatophytosis of nail [Unknown]
  - Visual impairment [Unknown]
  - Liver disorder [Unknown]
  - Sinusitis [Unknown]
  - Rhinitis [Unknown]
  - Memory impairment [Unknown]
  - Nasopharyngitis [Unknown]
  - Spinal osteoarthritis [Not Recovered/Not Resolved]
  - Product availability issue [Unknown]
  - Rheumatoid arthritis [Not Recovered/Not Resolved]
  - Hypersensitivity [Unknown]
  - Dysgeusia [Unknown]
  - Renal pain [Not Recovered/Not Resolved]
  - Drug dose omission [Not Recovered/Not Resolved]
  - Malaise [Not Recovered/Not Resolved]
  - Headache [Unknown]
  - Drug interaction [Unknown]
  - Drug ineffective [Not Recovered/Not Resolved]
  - Neuralgia [Unknown]
  - Mass [Not Recovered/Not Resolved]
  - Oropharyngeal pain [Unknown]
  - Alopecia [Unknown]

NARRATIVE: CASE EVENT DATE: 2017
